FAERS Safety Report 11191029 (Version 4)
Quarter: 2015Q4

REPORT INFORMATION
  Report Type: Spontaneous
  Country: US (occurrence: US)
  Receive Date: 20150615
  Receipt Date: 20151207
  Transmission Date: 20160304
  Serious: No
  Sender: FDA-Public Use
  Company Number: US-PFIZER INC-2014331540

PATIENT
  Age: 60 Year
  Sex: Female

DRUGS (14)
  1. LYRICA [Suspect]
     Active Substance: PREGABALIN
     Indication: MIGRAINE
     Dosage: 75 MG, 4X/DAY
     Route: 048
  2. LYRICA [Suspect]
     Active Substance: PREGABALIN
     Indication: HERPES ZOSTER
     Dosage: 100 MG, 4X/DAY
     Route: 048
  3. TYLENOL ARTHRITIS PAIN [Concomitant]
     Active Substance: ACETAMINOPHEN
     Dosage: 650 MG 2 TABS, AS NEEDED
     Route: 048
  4. LYRICA [Suspect]
     Active Substance: PREGABALIN
     Indication: FIBROMYALGIA
     Dosage: 75 MG, 3X/DAY
     Route: 048
     Dates: end: 20141119
  5. SYMBICORT [Concomitant]
     Active Substance: BUDESONIDE\FORMOTEROL FUMARATE DIHYDRATE
     Dosage: (BUDESONIDE 160 MCG, FORMOTEROL FUMARATE 4.5 MCG/INH) 2 PUFFS 2X/DAY
     Route: 055
  6. JUICE PLUS [Concomitant]
     Active Substance: DIETARY SUPPLEMENT
     Dosage: UNK, (AS DIRECTED) 1X/DAY
  7. PAIN RELIEF PM [Concomitant]
     Active Substance: ACETAMINOPHEN\DIPHENHYDRAMINE HYDROCHLORIDE
     Dosage: 500 MG-25 MG 1 CAP ORALLY QHS, 1X/DAY
     Route: 048
  8. CALCIUM+D+MAGNISIUM+ZINC [Concomitant]
     Dosage: UNK, AS DIRECTED
  9. ALBUTEROL IPRATROPIUM [Concomitant]
     Dosage: 1 PUFF, 4X/DAY
     Route: 055
  10. VITAMIN B COMPLEX [Concomitant]
     Active Substance: CYANOCOBALAMIN\DEXPANTHENOL\NIACINAMIDE\PYRIDOXINE HYDROCHLORIDE\RIBOFLAVIN 5^-PHOSPHATE SODIUM\THIAMINE HYDROCHLORIDE\VITAMIN B COMPLEX
     Dosage: UNK, 1X/DAY (ONCE A DAY)
  11. VITAMIN D3 [Concomitant]
     Active Substance: CHOLECALCIFEROL
     Dosage: 400 IU, 1X/DAY
     Route: 048
  12. LISINOPRIL. [Concomitant]
     Active Substance: LISINOPRIL
     Dosage: 10 MG, 1X/DAY
     Route: 048
  13. FLAXSEED [Concomitant]
     Active Substance: FLAX SEED
     Dosage: 1200 MG, 1 UNK
  14. BUSPIRONE [Concomitant]
     Active Substance: BUSPIRONE HYDROCHLORIDE
     Dosage: 15 MG, 2X/DAY
     Route: 048

REACTIONS (2)
  - Memory impairment [Unknown]
  - Stress [Unknown]
